FAERS Safety Report 10235431 (Version 1)
Quarter: 2014Q2

REPORT INFORMATION
  Report Type: Spontaneous
  Country: AT (occurrence: None)
  Receive Date: 20140611
  Receipt Date: 20140611
  Transmission Date: 20141212
  Serious: Yes (Hospitalization)
  Sender: FDA-Public Use
  Company Number: SYM-2014-21819

PATIENT
  Sex: 0

DRUGS (1)
  1. WELLBUTRIN (BUPROPION HYDROCHLORIDE) (TABLET) (BUPROPION HYDROCHLORIDE) [Suspect]
     Indication: PRODUCT USED FOR UNKNOWN INDICATION

REACTIONS (1)
  - Hyponatraemia [None]
